FAERS Safety Report 9883753 (Version 2)
Quarter: 2014Q1

REPORT INFORMATION
  Report Type: Report from Study
  Country: US (occurrence: US)
  Receive Date: 20140210
  Receipt Date: 20140221
  Transmission Date: 20141002
  Serious: Yes (Death)
  Sender: FDA-Public Use
  Company Number: US-ROCHE-1326939

PATIENT
  Age: 83 Year
  Sex: Male
  Weight: 80.36 kg

DRUGS (2)
  1. AVASTIN [Suspect]
     Indication: COLON CANCER
     Route: 042
  2. CPT-11 [Concomitant]

REACTIONS (2)
  - Colon cancer [Fatal]
  - Intestinal obstruction [Fatal]
